FAERS Safety Report 24014904 (Version 1)
Quarter: 2024Q2

REPORT INFORMATION
  Report Type: Spontaneous
  Country: US (occurrence: US)
  Receive Date: 20240626
  Receipt Date: 20240626
  Transmission Date: 20240716
  Serious: No
  Sender: FDA-Public Use
  Company Number: US-BAYER-2024A091792

PATIENT
  Age: 58 Year
  Sex: Male

DRUGS (1)
  1. MIRALAX [Suspect]
     Active Substance: POLYETHYLENE GLYCOL 3350
     Indication: Constipation
     Dosage: 17 G, BID
     Route: 048
     Dates: start: 20240610, end: 20240616

REACTIONS (3)
  - Drug ineffective [None]
  - Product physical issue [None]
  - Product use issue [None]

NARRATIVE: CASE EVENT DATE: 20240610
